FAERS Safety Report 15981761 (Version 1)
Quarter: 2019Q1

REPORT INFORMATION
  Report Type: Spontaneous
  Country: US (occurrence: US)
  Receive Date: 20190219
  Receipt Date: 20190219
  Transmission Date: 20190418
  Serious: Yes (Other)
  Sender: FDA-Public Use
  Company Number: None

PATIENT
  Age: 39 Year
  Sex: Male
  Weight: 128.8 kg

DRUGS (4)
  1. DILANTIN [Concomitant]
     Active Substance: PHENYTOIN
     Dates: start: 20160822
  2. CLOBAZAM. [Suspect]
     Active Substance: CLOBAZAM
     Indication: EPILEPSY
     Route: 048
     Dates: start: 20181204, end: 20190219
  3. DIASTAT ACUDIAL [Concomitant]
     Active Substance: DIAZEPAM
     Dates: start: 20160822
  4. ZONEGRAN [Concomitant]
     Active Substance: ZONISAMIDE
     Dates: start: 20160822

REACTIONS (4)
  - Mood swings [None]
  - Suicidal ideation [None]
  - Aggression [None]
  - Insomnia [None]

NARRATIVE: CASE EVENT DATE: 20190218
